FAERS Safety Report 6773255-6 (Version None)
Quarter: 2010Q2

REPORT INFORMATION
  Report Type: 
  Country: None (occurrence: None)
  Receive Date: 20100616
  Receipt Date: 20100527
  Transmission Date: 20101027
  Serious: Yes (Other)
  Sender: FDA-Public Use
  Company Number: US-ABBOTT-10P-163-0631779-00

PATIENT
  Sex: Male
  Weight: 66.738 kg

DRUGS (3)
  1. TRILIPIX [Suspect]
     Indication: HYPERTRIGLYCERIDAEMIA
     Route: 048
     Dates: start: 20090817, end: 20100310
  2. TRILIPIX [Suspect]
     Dates: start: 20100316
  3. CRESTOR [Suspect]
     Indication: DRUG USE FOR UNKNOWN INDICATION
     Dosage: 5 MG

REACTIONS (2)
  - CHOLELITHIASIS [None]
  - HEPATITIS [None]
